FAERS Safety Report 8573251-2 (Version None)
Quarter: 2012Q3

REPORT INFORMATION
  Report Type: 
  Country: None (occurrence: None)
  Receive Date: 20120806
  Receipt Date: 20120801
  Transmission Date: 20120928
  Serious: Yes (Hospitalization)
  Sender: FDA-Public Use
  Company Number: FR-ROCHE-1019595

PATIENT
  Sex: Female
  Weight: 56.069 kg

DRUGS (7)
  1. DESLORATADINE [Concomitant]
     Dates: start: 20030101, end: 20110701
  2. VENTOLIN [Concomitant]
     Dates: start: 20030101
  3. SINGULAIR [Concomitant]
     Dates: start: 20030101, end: 20110701
  4. DILATRANE [Concomitant]
     Dates: start: 20030101, end: 20110701
  5. XOLAIR [Suspect]
     Dates: start: 20111201
  6. SERETIDE [Concomitant]
     Dates: end: 20110601
  7. XOLAIR [Suspect]
     Indication: ASTHMA
     Dates: start: 20080201, end: 20110601

REACTIONS (3)
  - NORMAL NEWBORN [None]
  - ASTHMA [None]
  - MATERNAL EXPOSURE DURING PREGNANCY [None]
